FAERS Safety Report 9851774 (Version 2)
Quarter: 2014Q1

REPORT INFORMATION
  Report Type: Spontaneous
  Country: AU (occurrence: AU)
  Receive Date: 20140129
  Receipt Date: 20140129
  Transmission Date: 20141002
  Serious: Yes (Other)
  Sender: FDA-Public Use
  Company Number: AU-ASTRAZENECA-2013SE86235

PATIENT
  Age: 56 Year
  Sex: Male

DRUGS (9)
  1. ATACAND [Suspect]
     Route: 048
     Dates: start: 2003
  2. ATACAND PLUS [Suspect]
     Dosage: 16+12.5 MG DAILY
     Route: 048
  3. TENORMIN [Suspect]
     Route: 048
  4. ZANIDIP [Suspect]
     Indication: HYPERTENSION
     Route: 065
  5. PRISTIQ [Concomitant]
     Indication: DEPRESSION
     Dates: start: 20131120
  6. INDERAL [Concomitant]
     Indication: MIGRAINE
  7. ZOLOFT [Concomitant]
     Indication: DEPRESSION
     Dates: start: 201303
  8. LERCANIDIPINE ACTAVIS [Concomitant]
  9. UNKNOWN MEDICATION [Concomitant]

REACTIONS (2)
  - Erectile dysfunction [Unknown]
  - Depression [Unknown]
